FAERS Safety Report 18173389 (Version 1)
Quarter: 2020Q3

REPORT INFORMATION
  Report Type: Spontaneous
  Country: CN (occurrence: CN)
  Receive Date: 20200820
  Receipt Date: 20200820
  Transmission Date: 20201103
  Serious: Yes (Hospitalization, Other)
  Sender: FDA-Public Use
  Company Number: CN-SPECGX-T202001450

PATIENT
  Age: 29 Year
  Sex: Female

DRUGS (4)
  1. OXYCODONE/ACETAMINOPHEN [Suspect]
     Active Substance: ACETAMINOPHEN\OXYCODONE HYDROCHLORIDE
     Dosage: 100 MILLIGRAM
     Route: 048
  2. OXYCODONE/ACETAMINOPHEN [Suspect]
     Active Substance: ACETAMINOPHEN\OXYCODONE HYDROCHLORIDE
     Dosage: 300 MILLIGRAM, QD
     Route: 048
  3. OXYCODONE/ACETAMINOPHEN [Suspect]
     Active Substance: ACETAMINOPHEN\OXYCODONE HYDROCHLORIDE
     Indication: PRODUCT USED FOR UNKNOWN INDICATION
     Dosage: UNK
     Route: 048
     Dates: start: 201706
  4. OXYCODONE/ACETAMINOPHEN [Suspect]
     Active Substance: ACETAMINOPHEN\OXYCODONE HYDROCHLORIDE
     Dosage: 200 MILLIGRAM, DAILY AVERAGE DOSE, WEEK PRIOR TO ADMISSION
     Route: 048

REACTIONS (14)
  - Disturbance in attention [Unknown]
  - Hyperhidrosis [Unknown]
  - Irregular sleep phase [Unknown]
  - Impulsive behaviour [Unknown]
  - Palpitations [Unknown]
  - Withdrawal syndrome [Unknown]
  - Fatigue [Unknown]
  - Affect lability [Unknown]
  - Dyspnoea [Unknown]
  - Eating disorder [Unknown]
  - Constipation [Unknown]
  - Drug dependence [Unknown]
  - Irregular sleep wake rhythm disorder [Unknown]
  - Anxiety [Recovering/Resolving]
